FAERS Safety Report 7515647-3 (Version None)
Quarter: 2011Q2

REPORT INFORMATION
  Report Type: 
  Country: None (occurrence: None)
  Receive Date: 20110601
  Receipt Date: 20100715
  Transmission Date: 20111010
  Serious: No
  Sender: FDA-Public Use
  Company Number: US-PFIZER INC-2010089420

PATIENT
  Sex: Male
  Weight: 74.83 kg

DRUGS (8)
  1. SIMVASTATIN [Concomitant]
     Indication: BLOOD CHOLESTEROL INCREASED
     Dosage: 80 MG, DAILY
  2. PLAVIX [Concomitant]
     Indication: CARDIAC DISORDER
     Dosage: 75 MG, DAILY
  3. CARVEDILOL [Concomitant]
     Indication: CARDIAC DISORDER
     Dosage: 12.5 MG, UNK
  4. LISINOPRIL [Concomitant]
     Indication: CARDIAC DISORDER
     Dosage: 20 MG, DAILY
  5. ASPIRIN [Concomitant]
     Dosage: 81 MG, DAILY
  6. PRILOSEC [Concomitant]
     Dosage: 20 MG, DAILY
  7. CHANTIX [Suspect]
     Indication: SMOKING CESSATION THERAPY
     Dosage: 0.5 MG, 1X/DAY
     Route: 048
     Dates: start: 20100704
  8. CHANTIX [Suspect]
     Dosage: 0.5 MG TWO TIMES A DAY
     Route: 048
     Dates: start: 20100707, end: 20100708

REACTIONS (1)
  - PAIN IN EXTREMITY [None]
